FAERS Safety Report 7342837-5 (Version None)
Quarter: 2011Q1

REPORT INFORMATION
  Report Type: 
  Country: None (occurrence: None)
  Receive Date: 20110301
  Receipt Date: 20110222
  Transmission Date: 20110831
  Serious: Yes (Other)
  Sender: FDA-Public Use
  Company Number: FK201100233

PATIENT
  Age: 55 Year
  Sex: Female

DRUGS (5)
  1. PACLITAXEL [Suspect]
     Indication: OVARIAN CANCER
     Dates: start: 20101104
  2. ONDANSETRON [Suspect]
     Dosage: (8 MG, 3 / 1 DAYS)
  3. DEXAMETHASONE (DEXAMETHASONE) (DEXAMETHASONE) [Concomitant]
  4. CARBOPLATIN [Suspect]
     Indication: OVARIAN CANCER
     Dates: start: 20101104
  5. CO-CODAMOL (PANADEINE CO) (PANADEINE CO) [Concomitant]

REACTIONS (7)
  - CARDIAC VALVE DISEASE [None]
  - PAIN IN EXTREMITY [None]
  - SPLINTER HAEMORRHAGES [None]
  - CONTUSION [None]
  - INFARCTION [None]
  - MUSCULOSKELETAL DISCOMFORT [None]
  - ARTERIAL THROMBOSIS [None]
